FAERS Safety Report 8448671-7 (Version None)
Quarter: 2012Q2

REPORT INFORMATION
  Report Type: 
  Country: None (occurrence: None)
  Receive Date: 20120619
  Receipt Date: 20120608
  Transmission Date: 20120825
  Serious: Yes (Hospitalization, Disabling)
  Sender: FDA-Public Use
  Company Number: US-MERCK-1203USA03398

PATIENT
  Age: 58 Year
  Sex: Female
  Weight: 99 kg

DRUGS (10)
  1. VITAMIN D (UNSPECIFIED) [Concomitant]
     Route: 065
     Dates: start: 20020101
  2. FOSAMAX PLUS D [Suspect]
     Route: 048
     Dates: start: 20070301, end: 20090101
  3. MAGNESIUM (UNSPECIFIED) [Concomitant]
     Route: 065
     Dates: start: 20020101
  4. CALCIUM (UNSPECIFIED) [Concomitant]
     Route: 065
     Dates: start: 20020101
  5. ACTONEL [Suspect]
     Indication: OSTEOPOROSIS
     Route: 048
     Dates: start: 20070901
  6. ALENDRONATE SODIUM [Suspect]
     Indication: OSTEOPOROSIS
     Route: 048
     Dates: start: 20090721, end: 20091021
  7. OMEPRAZOLE [Concomitant]
     Route: 065
     Dates: start: 20020101
  8. FOSAMAX [Suspect]
     Indication: OSTEOPENIA
     Route: 048
     Dates: start: 20070302, end: 20090130
  9. FOSAMAX [Suspect]
     Indication: OSTEOPOROSIS
     Route: 048
     Dates: start: 20070302, end: 20090130
  10. VITAMINS (UNSPECIFIED) [Concomitant]
     Route: 065
     Dates: start: 20020101

REACTIONS (25)
  - FEMUR FRACTURE [None]
  - ANAEMIA [None]
  - OEDEMA PERIPHERAL [None]
  - INFECTION [None]
  - COUGH [None]
  - OSTEOARTHRITIS [None]
  - VITAMIN D DEFICIENCY [None]
  - LEFT VENTRICULAR HYPERTROPHY [None]
  - ASTHENIA [None]
  - CATARACT [None]
  - INFLAMMATION [None]
  - ARTHRALGIA [None]
  - LIMB INJURY [None]
  - EYE DISORDER [None]
  - LOW TURNOVER OSTEOPATHY [None]
  - TOOTH DISORDER [None]
  - INTERVERTEBRAL DISC DEGENERATION [None]
  - OSTEOPOROSIS [None]
  - PULMONARY CONGESTION [None]
  - CARDIOMEGALY [None]
  - PAIN [None]
  - ASTHMA [None]
  - CHRONIC OBSTRUCTIVE PULMONARY DISEASE [None]
  - BACK PAIN [None]
  - FALL [None]
